FAERS Safety Report 5832673-0 (Version None)
Quarter: 2008Q3

REPORT INFORMATION
  Report Type: 
  Country: None (occurrence: None)
  Receive Date: 20080804
  Receipt Date: 20080730
  Transmission Date: 20090109
  Serious: Yes (Death, Other)
  Sender: FDA-Public Use
  Company Number: PHEH2007US05653

PATIENT
  Sex: Male

DRUGS (1)
  1. EXJADE [Suspect]

REACTIONS (5)
  - ASTHENIA [None]
  - DEATH [None]
  - DECREASED APPETITE [None]
  - INSOMNIA [None]
  - VOMITING [None]
